FAERS Safety Report 4732238-8 (Version None)
Quarter: 2005Q3

REPORT INFORMATION
  Report Type: 
  Country: None (occurrence: None)
  Receive Date: 20050726
  Receipt Date: 20041012
  Transmission Date: 20060218
  Serious: Yes (Hospitalization)
  Sender: FDA-Public Use
  Company Number: 04FRA0234

PATIENT
  Age: 70 Year
  Sex: Male

DRUGS (4)
  1. AGGRASTAT [Suspect]
     Indication: ANGINA UNSTABLE
     Dosage: IV
     Route: 042
     Dates: start: 20040909, end: 20040910
  2. NADROPARIN (NADROPARIN) [Suspect]
     Indication: ANGINA UNSTABLE
     Dosage: 0.8 ML/BID,SC
     Route: 058
     Dates: start: 20040909, end: 20040910
  3. CLOPIDOGREL BISULFATE [Concomitant]
  4. ASPIRIN LYCINE(ACETYLSALICYLATE LYSINE) [Concomitant]

REACTIONS (2)
  - HAEMATOMA [None]
  - THROMBOCYTOPENIA [None]
